FAERS Safety Report 5826336-5 (Version None)
Quarter: 2008Q3

REPORT INFORMATION
  Report Type: 
  Country: None (occurrence: None)
  Receive Date: 20080724
  Receipt Date: 20080709
  Transmission Date: 20090109
  Serious: Yes (Other)
  Sender: FDA-Public Use
  Company Number: TNZFR200800122

PATIENT
  Age: 69 Year
  Sex: Male
  Weight: 70 kg

DRUGS (13)
  1. INNOHEP [Suspect]
     Indication: THROMBOSIS PROPHYLAXIS
     Dosage: 4500 IU, DAILY, SUBCUTANEOUS
     Route: 058
     Dates: start: 20080614, end: 20080625
  2. INNOHEP [Suspect]
  3. INNOHEP [Suspect]
  4. INNOHEP [Suspect]
  5. HEPARIN [Suspect]
     Indication: ANTICOAGULANT THERAPY
     Dates: start: 20080613, end: 20080618
  6. BISOPROL (BISOPROLOL FUMARATE) [Concomitant]
  7. ENALAPRIL MALEATE [Concomitant]
  8. PLAVIX [Concomitant]
  9. NICARDIPINE HYDROCHLORIDE [Concomitant]
  10. PRAVASTATIN [Concomitant]
  11. MOPRAL (OMEPRAZOLE) [Concomitant]
  12. ACETAMINOPHEN [Concomitant]
  13. SEREVENT [Concomitant]

REACTIONS (5)
  - HAEMATOMA [None]
  - POST PROCEDURAL HAEMATOMA [None]
  - POST PROCEDURAL INFECTION [None]
  - PSEUDOMONAS INFECTION [None]
  - TRANSIENT ISCHAEMIC ATTACK [None]
